FAERS Safety Report 9904282 (Version 2)
Quarter: 2014Q1

REPORT INFORMATION
  Report Type: Spontaneous
  Country: US (occurrence: US)
  Receive Date: 20140218
  Receipt Date: 20140325
  Transmission Date: 20141002
  Serious: Yes (Other)
  Sender: FDA-Public Use
  Company Number: US-BAYER-2014-021913

PATIENT
  Age: 60 Year
  Sex: Male

DRUGS (1)
  1. BETASERON [Suspect]
     Indication: MULTIPLE SCLEROSIS
     Dosage: 0.25 MG, UNK
     Route: 058
     Dates: start: 200006

REACTIONS (6)
  - Shoulder operation [None]
  - Hip arthroplasty [None]
  - Pharyngeal cyst [None]
  - Influenza like illness [None]
  - Skin infection [None]
  - Injection site reaction [Recovered/Resolved]
